FAERS Safety Report 7433491-2 (Version None)
Quarter: 2011Q2

REPORT INFORMATION
  Report Type: 
  Country: None (occurrence: None)
  Receive Date: 20110422
  Receipt Date: 20110218
  Transmission Date: 20111010
  Serious: No
  Sender: FDA-Public Use
  Company Number: US-MUTUAL PHARMACEUTICAL COMPANY, INC.-CLCY20110017

PATIENT
  Age: 39 Year
  Sex: Male
  Weight: 99.88 kg

DRUGS (3)
  1. ALLOPURINOL [Concomitant]
     Indication: GOUT
     Route: 048
     Dates: start: 20110101, end: 20110201
  2. COLCRYS [Suspect]
     Indication: GOUT
     Route: 048
     Dates: start: 20110101, end: 20110101
  3. COLCRYS [Suspect]
     Dates: start: 20110207, end: 20110215

REACTIONS (10)
  - PALLOR [None]
  - CHILLS [None]
  - HYPERHIDROSIS [None]
  - ALANINE AMINOTRANSFERASE INCREASED [None]
  - RESTLESS LEGS SYNDROME [None]
  - PAIN [None]
  - BLOOD LACTATE DEHYDROGENASE INCREASED [None]
  - ASPARTATE AMINOTRANSFERASE INCREASED [None]
  - DECREASED APPETITE [None]
  - PERIPHERAL COLDNESS [None]
